FAERS Safety Report 8460399-6 (Version None)
Quarter: 2012Q2

REPORT INFORMATION
  Report Type: 
  Country: None (occurrence: None)
  Receive Date: 20120622
  Receipt Date: 20120618
  Transmission Date: 20120825
  Serious: Yes (Hospitalization)
  Sender: FDA-Public Use
  Company Number: AU-ELI_LILLY_AND_COMPANY-AU201206006263

PATIENT
  Sex: Male

DRUGS (2)
  1. HUMALOG [Suspect]
     Dosage: 40 U, UNKNOWN
  2. HUMALOG [Suspect]
     Dosage: 32 U, SINGLE

REACTIONS (3)
  - INCORRECT DOSE ADMINISTERED [None]
  - HOSPITALISATION [None]
  - ADVERSE EVENT [None]
